FAERS Safety Report 8265548-0 (Version None)
Quarter: 2012Q2

REPORT INFORMATION
  Report Type: 
  Country: None (occurrence: None)
  Receive Date: 20120406
  Receipt Date: 20120403
  Transmission Date: 20120825
  Serious: Yes (Other)
  Sender: FDA-Public Use
  Company Number: US-PFIZER INC-2011311494

PATIENT
  Sex: Male

DRUGS (19)
  1. ZIPRASIDONE [Concomitant]
     Indication: AGGRESSION
  2. FLUNISOLIDE [Concomitant]
     Indication: MULTIPLE ALLERGIES
     Dosage: UNK
     Dates: start: 20050101, end: 20100101
  3. TRAZODONE [Concomitant]
     Indication: DEPRESSION
     Dosage: UNK
     Dates: start: 20050101, end: 20090128
  4. ZIPRASIDONE [Concomitant]
     Indication: PSYCHOTIC DISORDER
  5. ZIPRASIDONE [Concomitant]
     Indication: SUICIDAL BEHAVIOUR
  6. CHANTIX [Suspect]
     Indication: SMOKING CESSATION THERAPY
     Dosage: UNK
     Dates: start: 20081120, end: 20090101
  7. ZIPRASIDONE [Concomitant]
     Indication: SUICIDAL IDEATION
  8. VALACICLOVIR [Concomitant]
     Indication: HERPES ZOSTER
     Dosage: UNK
     Dates: start: 20070101
  9. DIPHENHYDRAMINE [Concomitant]
     Indication: INSOMNIA
     Dosage: UNK
     Dates: start: 20070101, end: 20090101
  10. CLONAZEPAM [Concomitant]
     Indication: SOCIAL PHOBIA
  11. ZIPRASIDONE [Concomitant]
     Indication: MOOD SWINGS
  12. MAGNESIUM CITRATE [Concomitant]
     Indication: COLONOSCOPY
     Dosage: UNK
     Dates: start: 20060101, end: 20090401
  13. CLONAZEPAM [Concomitant]
     Indication: ANXIETY
     Dosage: UNK
     Dates: start: 20080901
  14. ZIPRASIDONE [Concomitant]
     Indication: SCHIZOPHRENIA
     Dosage: UNK
     Dates: start: 20050101, end: 20100401
  15. ZIPRASIDONE [Concomitant]
     Indication: IRRITABILITY
  16. ZIPRASIDONE [Concomitant]
     Indication: DEPRESSION
  17. HUMULIN 70/30 [Concomitant]
     Indication: DIABETES MELLITUS
     Dosage: UNK
     Dates: start: 20060101
  18. BISACODYL [Concomitant]
     Indication: COLONOSCOPY
     Dosage: UNK
     Dates: start: 20060101, end: 20090401
  19. CLONAZEPAM [Concomitant]
     Indication: POST-TRAUMATIC STRESS DISORDER

REACTIONS (13)
  - PARANOIA [None]
  - SUICIDAL IDEATION [None]
  - FEAR [None]
  - DEPRESSION [None]
  - INSOMNIA [None]
  - NIGHTMARE [None]
  - AGGRESSION [None]
  - SCHIZOPHRENIA [None]
  - MOOD SWINGS [None]
  - SUICIDAL BEHAVIOUR [None]
  - ANXIETY [None]
  - IRRITABILITY [None]
  - NIGHT SWEATS [None]
